FAERS Safety Report 5615798-4 (Version None)
Quarter: 2008Q1

REPORT INFORMATION
  Report Type: 
  Country: None (occurrence: None)
  Receive Date: 20080206
  Receipt Date: 20080204
  Transmission Date: 20080703
  Serious: Yes (Other)
  Sender: FDA-Public Use
  Company Number: US-GILEAD-2008-0015103

PATIENT
  Age: 32 Year
  Sex: Female

DRUGS (7)
  1. TRUVADA [Suspect]
     Route: 048
     Dates: start: 20060518, end: 20070520
  2. KALETRA [Suspect]
     Indication: HIV INFECTION
     Route: 048
     Dates: start: 20060518, end: 20061031
  3. KALETRA [Suspect]
     Route: 048
     Dates: start: 20061101, end: 20070520
  4. PYRIMETHAMINE [Concomitant]
     Indication: CEREBRAL TOXOPLASMOSIS
  5. LEUCOVORIN CALCIUM [Concomitant]
  6. CLINDAMYCIN HCL [Concomitant]
     Dates: start: 20060810
  7. BACTRIM [Concomitant]
     Dates: start: 20060810

REACTIONS (1)
  - ABORTION SPONTANEOUS [None]
